FAERS Safety Report 25093604 (Version 1)
Quarter: 2025Q1

REPORT INFORMATION
  Report Type: Spontaneous
  Country: CA (occurrence: CA)
  Receive Date: 20250319
  Receipt Date: 20250319
  Transmission Date: 20250408
  Serious: Yes (Other)
  Sender: BRISTOL-MYERS SQUIBB COMPANY
  Company Number: CA-BRISTOL-MYERS SQUIBB COMPANY-2025-037513

PATIENT
  Age: 63 Year
  Sex: Male

DRUGS (3)
  1. NIVOLUMAB [Suspect]
     Active Substance: NIVOLUMAB
     Indication: Metastatic malignant melanoma
     Route: 042
  2. YERVOY [Suspect]
     Active Substance: IPILIMUMAB
     Indication: Metastatic malignant melanoma
     Route: 042
  3. YERVOY [Suspect]
     Active Substance: IPILIMUMAB
     Route: 042

REACTIONS (7)
  - Cardiomyopathy [Unknown]
  - Diplopia [Unknown]
  - Metastases to abdominal cavity [Unknown]
  - Muscular weakness [Unknown]
  - Myositis [Unknown]
  - Nausea [Unknown]
  - Pain [Unknown]
